FAERS Safety Report 24755820 (Version 4)
Quarter: 2025Q4

REPORT INFORMATION
  Report Type: Spontaneous
  Country: US (occurrence: US)
  Receive Date: 20241219
  Receipt Date: 20251119
  Transmission Date: 20260118
  Serious: No
  Sender: ALEXION PHARMACEUTICALS
  Company Number: 2023A197080

PATIENT
  Sex: Female

DRUGS (3)
  1. FASLODEX [Suspect]
     Active Substance: FULVESTRANT
     Dosage: UNK
     Route: 065
  2. FASLODEX [Suspect]
     Active Substance: FULVESTRANT
  3. IBRANCE [Suspect]
     Active Substance: PALBOCICLIB
     Dosage: 100 MG

REACTIONS (4)
  - Rash [Unknown]
  - Back disorder [Unknown]
  - Lip swelling [Not Recovered/Not Resolved]
  - Throat clearing [Unknown]
